FAERS Safety Report 4689365-3 (Version None)
Quarter: 2005Q2

REPORT INFORMATION
  Report Type: 
  Country: None (occurrence: None)
  Receive Date: 20050608
  Receipt Date: 20050203
  Transmission Date: 20051028
  Serious: No
  Sender: FDA-Public Use
  Company Number: 2005-BP-01169BP

PATIENT
  Age: 62 Year
  Sex: Male
  Weight: 95.45 kg

DRUGS (7)
  1. SPIRIVA [Suspect]
     Indication: CHRONIC OBSTRUCTIVE PULMONARY DISEASE
     Dosage: 18 MCG (18 MCG, 1 IN 1 D), IH
     Route: 055
     Dates: start: 20041207, end: 20050115
  2. DYNACIN (MINOCYCLINE HYDROCHLORIDE) [Concomitant]
  3. LIPITOR [Concomitant]
  4. PREVACID [Concomitant]
  5. ENALAPRIL MALEATE [Concomitant]
  6. LORATADINE [Concomitant]
  7. FLONASE [Concomitant]

REACTIONS (2)
  - LARYNGITIS [None]
  - PHARYNGOLARYNGEAL PAIN [None]
